FAERS Safety Report 5701006-2 (Version None)
Quarter: 2008Q2

REPORT INFORMATION
  Report Type: 
  Country: None (occurrence: None)
  Receive Date: 20080410
  Receipt Date: 20080403
  Transmission Date: 20081010
  Serious: Yes (Hospitalization, Other)
  Sender: FDA-Public Use
  Company Number: US-ASTRAZENECA-2006UW07891

PATIENT
  Age: 651 Month
  Sex: Female
  Weight: 90.9 kg

DRUGS (10)
  1. SEROQUEL [Suspect]
     Indication: SCHIZOPHRENIA
     Route: 048
     Dates: start: 20010901, end: 20070301
  2. SEROQUEL [Suspect]
     Indication: BIPOLAR DISORDER
     Route: 048
     Dates: start: 20010901, end: 20070301
  3. SEROQUEL [Suspect]
     Indication: DEPRESSION
     Route: 048
     Dates: start: 20010901, end: 20070301
  4. SEROQUEL [Suspect]
     Dosage: 100 MG TO 200 MG
     Route: 048
     Dates: start: 20010901, end: 20070301
  5. SEROQUEL [Suspect]
     Dosage: 100 MG TO 200 MG
     Route: 048
     Dates: start: 20010901, end: 20070301
  6. SEROQUEL [Suspect]
     Dosage: 100 MG TO 200 MG
     Route: 048
     Dates: start: 20010901, end: 20070301
  7. ABILIFY (ARIPIPARAZOLE) [Concomitant]
     Dates: start: 20070101
  8. DOXEPIN HCL [Concomitant]
     Dates: start: 20020101
  9. EFFEXOR [Concomitant]
     Dates: start: 20020101
  10. ZOCOR [Concomitant]
     Dates: start: 20060101

REACTIONS (3)
  - MENTAL DISORDER [None]
  - SURGERY [None]
  - TYPE 2 DIABETES MELLITUS [None]
